FAERS Safety Report 5895895-9 (Version None)
Quarter: 2008Q3

REPORT INFORMATION
  Report Type: 
  Country: None (occurrence: None)
  Receive Date: 20080924
  Receipt Date: 20080918
  Transmission Date: 20090109
  Serious: Yes (Hospitalization, Other)
  Sender: FDA-Public Use
  Company Number: US-ELI_LILLY_AND_COMPANY-US200809004390

PATIENT
  Sex: Female

DRUGS (4)
  1. HUMALOG [Suspect]
     Dosage: UNK, UNK
     Dates: start: 19960101
  2. COUMADIN [Concomitant]
  3. NEBIVOLOL HCL [Concomitant]
  4. LANTUS [Concomitant]

REACTIONS (13)
  - BLOOD GLUCOSE DECREASED [None]
  - BLOOD GLUCOSE INCREASED [None]
  - BREAST CANCER [None]
  - CARDIAC DISORDER [None]
  - CONTUSION [None]
  - ESSENTIAL TREMOR [None]
  - EXPIRED DRUG ADMINISTERED [None]
  - FALL [None]
  - HEAD INJURY [None]
  - MUSCULAR WEAKNESS [None]
  - PITUITARY TUMOUR [None]
  - POST PROCEDURAL INFECTION [None]
  - SPINAL FRACTURE [None]
